FAERS Safety Report 5069479-9 (Version None)
Quarter: 2006Q3

REPORT INFORMATION
  Report Type: 
  Country: None (occurrence: None)
  Receive Date: 20060803
  Receipt Date: 20060529
  Transmission Date: 20061208
  Serious: Yes (Other)
  Sender: FDA-Public Use
  Company Number: DE-AVENTIS-200611574DE

PATIENT
  Age: 51 Year
  Sex: Male

DRUGS (6)
  1. KETEK [Suspect]
     Indication: RESPIRATORY TRACT INFECTION
     Dosage: DOSE: NOT REPORTED
     Route: 048
     Dates: start: 20021022, end: 20021027
  2. KETEK [Suspect]
     Route: 048
     Dates: start: 20021119, end: 20021124
  3. KLACID [Concomitant]
     Dosage: DOSE: NOT REPORTED
     Dates: start: 20020101, end: 20020101
  4. ERYTHROMYCIN [Concomitant]
     Indication: RESPIRATORY TRACT INFECTION
     Dosage: DOSE: NOT REPORTED
     Dates: start: 20021028
  5. OLYNTH [Concomitant]
     Indication: RESPIRATORY TRACT INFECTION
     Dosage: DOSE: NOT REPORTED
     Dates: start: 20021028
  6. ACC [Concomitant]
     Indication: RESPIRATORY TRACT INFECTION
     Dosage: DOSE: NOT REPORTED
     Dates: start: 20021028

REACTIONS (22)
  - ARTHRALGIA [None]
  - COLD SWEAT [None]
  - CYTOMEGALOVIRUS INFECTION [None]
  - DEPRESSED LEVEL OF CONSCIOUSNESS [None]
  - DRUG TOXICITY [None]
  - EPSTEIN-BARR VIRUS INFECTION [None]
  - HEADACHE [None]
  - HERPES SIMPLEX [None]
  - IMMUNE SYSTEM DISORDER [None]
  - LUNG DISORDER [None]
  - MYALGIA [None]
  - PLEURISY [None]
  - PULMONARY EMBOLISM [None]
  - PULMONARY FIBROSIS [None]
  - PULMONARY OEDEMA [None]
  - RENAL CYST [None]
  - RESPIRATORY FAILURE [None]
  - RHEUMATOID FACTOR INCREASED [None]
  - SEPSIS [None]
  - SKIN DISCOLOURATION [None]
  - TESTICULAR CYST [None]
  - VASCULITIS [None]
